FAERS Safety Report 6173463-1 (Version None)
Quarter: 2009Q2

REPORT INFORMATION
  Report Type: 
  Country: None (occurrence: None)
  Receive Date: 20090430
  Receipt Date: 20090421
  Transmission Date: 20091009
  Serious: Yes (Hospitalization, Congenital Anomaly)
  Sender: FDA-Public Use
  Company Number: A0680881A

PATIENT
  Sex: Female

DRUGS (3)
  1. PAXIL [Suspect]
     Indication: DEPRESSION
     Dosage: 20MG PER DAY
     Dates: start: 19980101, end: 19990101
  2. ZOLOFT [Concomitant]
     Indication: DEPRESSION
     Dates: start: 19980101, end: 19990101
  3. VITAMIN TAB [Concomitant]
     Indication: PREGNANCY
     Dates: start: 19870101, end: 19990101

REACTIONS (14)
  - ANOMALOUS PULMONARY VENOUS CONNECTION [None]
  - ATRIAL SEPTAL DEFECT [None]
  - CARDIAC FAILURE CONGESTIVE [None]
  - CARDIOMEGALY [None]
  - CONGENITAL MITRAL VALVE STENOSIS [None]
  - CONGESTIVE CARDIOMYOPATHY [None]
  - DRUG EXPOSURE DURING PREGNANCY [None]
  - HEPATOMEGALY [None]
  - HYPOPLASTIC LEFT HEART SYNDROME [None]
  - PULMONARY HYPERTENSION [None]
  - RESPIRATORY DISTRESS [None]
  - RIGHT VENTRICULAR HYPERTROPHY [None]
  - TACHYPNOEA [None]
  - VENTRICULAR SEPTAL DEFECT [None]
